FAERS Safety Report 8235617-X (Version None)
Quarter: 2012Q1

REPORT INFORMATION
  Report Type: 
  Country: None (occurrence: None)
  Receive Date: 20120326
  Receipt Date: 20120314
  Transmission Date: 20120608
  Serious: Yes (Other)
  Sender: FDA-Public Use
  Company Number: US-ELI_LILLY_AND_COMPANY-US201203004720

PATIENT
  Age: 67 Year
  Sex: Male

DRUGS (6)
  1. CYMBALTA [Suspect]
     Dosage: 40 MG, QD
     Dates: start: 20120221
  2. COMBIVENT [Concomitant]
  3. LORATADINE [Concomitant]
  4. LEVOTHYROXINE                      /00068001/ [Concomitant]
  5. FAMOTIDINE [Concomitant]
  6. LOVENOX [Concomitant]

REACTIONS (2)
  - INCORRECT ROUTE OF DRUG ADMINISTRATION [None]
  - GASTROSTOMY TUBE INSERTION [None]
